FAERS Safety Report 11534177 (Version 1)
Quarter: 2015Q3

REPORT INFORMATION
  Report Type: Spontaneous
  Country: US (occurrence: None)
  Receive Date: 20150921
  Receipt Date: 20150921
  Transmission Date: 20151125
  Serious: Yes (Death)
  Sender: FDA-Public Use
  Company Number: None

PATIENT
  Age: 57 Year
  Sex: Male
  Weight: 84.37 kg

DRUGS (7)
  1. CALTRATE 600+D [Concomitant]
  2. KLOR-CON [Concomitant]
     Active Substance: POTASSIUM CHLORIDE
  3. RA 223 DICHLORIDE INJECTION BAYER PHARMA AG [Suspect]
     Active Substance: RADIUM RA-223 DICHLORIDE
     Indication: PROSTATE CANCER
     Dosage: 1.35 MICROCURIES/KG ONCE MONTHLY INTRAVENOUS
     Route: 042
     Dates: start: 20150528, end: 20150625
  4. LASIX [Concomitant]
     Active Substance: FUROSEMIDE
  5. CYCLOBENZAPRINE [Concomitant]
     Active Substance: CYCLOBENZAPRINE
  6. MAGIC MOUTHWASH [Concomitant]
     Active Substance: DIPHENHYDRAMINE HYDROCHLORIDE\LIDOCAINE HYDROCHLORIDE\NYSTATIN
  7. HYDROCODONE/ACETAMINOPHEN [Concomitant]
     Active Substance: ACETAMINOPHEN\HYDROCODONE

REACTIONS (9)
  - Cough [None]
  - Ventricular fibrillation [None]
  - Oedema peripheral [None]
  - Weight increased [None]
  - Early satiety [None]
  - Ascites [None]
  - Cardiac arrest [None]
  - Dyspnoea [None]
  - Abdominal distension [None]

NARRATIVE: CASE EVENT DATE: 20150728
